FAERS Safety Report 14943324 (Version 1)
Quarter: 2018Q2

REPORT INFORMATION
  Report Type: Other
  Country: NP (occurrence: NP)
  Receive Date: 20180528
  Receipt Date: 20180528
  Transmission Date: 20180711
  Serious: Yes (Death)
  Sender: FDA-Public Use
  Company Number: NP-KNIGHT THERAPEUTICS (USA) INC.-2048543

PATIENT
  Age: 74 Year
  Sex: Male

DRUGS (6)
  1. VORICONAZOLE. [Suspect]
     Active Substance: VORICONAZOLE
  2. AZITHROMYCIN ANHYDROUS. [Suspect]
     Active Substance: AZITHROMYCIN ANHYDROUS
  3. AMPHOTERICIN B. [Suspect]
     Active Substance: AMPHOTERICIN B
  4. IMPAVIDO [Suspect]
     Active Substance: MILTEFOSINE
     Indication: NAEGLERIA INFECTION
  5. FLUCYTOSINE. [Suspect]
     Active Substance: FLUCYTOSINE
  6. RIFAMPICIN [Suspect]
     Active Substance: RIFAMPIN

REACTIONS (5)
  - Off label use [None]
  - Drug ineffective for unapproved indication [Fatal]
  - Renal impairment [None]
  - Oliguria [None]
  - Blood bilirubin increased [None]
